FAERS Safety Report 14276190 (Version 4)
Quarter: 2018Q3

REPORT INFORMATION
  Report Type: Spontaneous
  Country: BE (occurrence: BE)
  Receive Date: 20171212
  Receipt Date: 20180725
  Transmission Date: 20181010
  Serious: Yes (Death, Hospitalization, Other)
  Sender: FDA-Public Use
  Company Number: BE-ACCORD-061752

PATIENT
  Age: 27 Year
  Sex: Female

DRUGS (9)
  1. VALGANCICLOVIR. [Suspect]
     Active Substance: VALGANCICLOVIR
     Indication: CYTOMEGALOVIRUS INFECTION
  2. BUSULFAN. [Suspect]
     Active Substance: BUSULFAN
     Indication: BONE MARROW CONDITIONING REGIMEN
  3. ANTILYMPHOCYTE IMMUNOGLOBULIN [Suspect]
     Active Substance: THYMOCYTE IMMUNE GLOBULIN NOS
     Indication: BONE MARROW CONDITIONING REGIMEN
  4. FLUDARABINE/FLUDARABINE PHOSPHATE [Suspect]
     Active Substance: FLUDARABINE PHOSPHATE
     Indication: BONE MARROW CONDITIONING REGIMEN
  5. CYCLOPHOSPHAMIDE/CYCLOPHOSPHAMIDE MONOHYDRATE [Suspect]
     Active Substance: CYCLOPHOSPHAMIDE
     Indication: BONE MARROW CONDITIONING REGIMEN
     Route: 041
  6. MYCOPHENOLIC ACID. [Suspect]
     Active Substance: MYCOPHENOLIC ACID
     Indication: PROPHYLAXIS AGAINST GRAFT VERSUS HOST DISEASE
  7. POSACONAZOLE [Concomitant]
     Active Substance: POSACONAZOLE
  8. TACROLIMUS. [Suspect]
     Active Substance: TACROLIMUS
     Indication: PROPHYLAXIS AGAINST GRAFT VERSUS HOST DISEASE
  9. FOSCAVIR [Concomitant]
     Active Substance: FOSCARNET SODIUM

REACTIONS (14)
  - Cytomegalovirus infection [Unknown]
  - Disseminated intravascular coagulation [Fatal]
  - Oedema [Unknown]
  - Venoocclusive liver disease [Unknown]
  - Diarrhoea [Unknown]
  - Hepatic failure [Fatal]
  - Rash [Unknown]
  - Haemorrhage [Fatal]
  - Adenoviral hepatitis [Fatal]
  - Hepatic necrosis [Fatal]
  - Pancytopenia [Unknown]
  - Oral candidiasis [Unknown]
  - Staphylococcal sepsis [Unknown]
  - Off label use [Unknown]
